FAERS Safety Report 23338829 (Version 1)
Quarter: 2023Q4

REPORT INFORMATION
  Report Type: Spontaneous
  Country: DE (occurrence: DE)
  Receive Date: 20231226
  Receipt Date: 20231226
  Transmission Date: 20240109
  Serious: Yes (Other)
  Sender: FDA-Public Use
  Company Number: DE-DCGMA-22199939

PATIENT
  Age: 78 Year
  Sex: Male
  Weight: 133 kg

DRUGS (4)
  1. LEVOFLOXACIN [Suspect]
     Active Substance: LEVOFLOXACIN
     Indication: Intervertebral discitis
     Dosage: 2X500MG
     Route: 042
     Dates: start: 20221116
  2. VANCOMYCIN [Concomitant]
     Active Substance: VANCOMYCIN
     Indication: Product used for unknown indication
     Dosage: ONE-TIME APPLICATION?1500 MG?INTRAVENOUS ?ROA-20045000
  3. MEROPENEM [Concomitant]
     Active Substance: MEROPENEM
     Indication: Product used for unknown indication
     Dosage: ONE-TIME APPLICATION?INTRAVENOUS?ROA-20045000
  4. RIFAMPIN [Concomitant]
     Active Substance: RIFAMPIN
     Indication: Intervertebral discitis
     Dosage: 3 X 300MG?INTRAVENOUS?ROA-20045000
     Dates: start: 20221116

REACTIONS (1)
  - Torsade de pointes [Recovered/Resolved]

NARRATIVE: CASE EVENT DATE: 20221117
